FAERS Safety Report 5483762-4 (Version None)
Quarter: 2007Q4

REPORT INFORMATION
  Report Type: 
  Country: None (occurrence: None)
  Receive Date: 20071012
  Receipt Date: 20071011
  Transmission Date: 20080405
  Serious: Yes (Other)
  Sender: FDA-Public Use
  Company Number: A0677360A

PATIENT
  Age: 14 Year
  Sex: Female
  Weight: 65.9 kg

DRUGS (1)
  1. LAMICTAL [Suspect]
     Dosage: 200MG TWICE PER DAY
     Route: 048
     Dates: start: 20070201

REACTIONS (2)
  - CONVULSION [None]
  - RASH PRURITIC [None]
